FAERS Safety Report 6875984-2 (Version None)
Quarter: 2010Q3

REPORT INFORMATION
  Report Type: 
  Country: None (occurrence: None)
  Receive Date: 20100727
  Receipt Date: 20070531
  Transmission Date: 20110219
  Serious: Yes (Other)
  Sender: FDA-Public Use
  Company Number: US-PFIZER INC-2006138730

PATIENT
  Sex: Male
  Weight: 95.3 kg

DRUGS (2)
  1. CELEBREX [Suspect]
     Dosage: 1 TO 2 TIMES DAILY
     Dates: start: 20000314, end: 20020806
  2. BEXTRA [Suspect]
     Indication: BACK PAIN
     Dates: start: 20020807

REACTIONS (1)
  - ACUTE MYOCARDIAL INFARCTION [None]
